FAERS Safety Report 4757443-6 (Version None)
Quarter: 2005Q3

REPORT INFORMATION
  Report Type: 
  Country: None (occurrence: None)
  Receive Date: 20050831
  Receipt Date: 20050824
  Transmission Date: 20060218
  Serious: Yes (Death, Hospitalization)
  Sender: FDA-Public Use
  Company Number: US-BRISTOL-MYERS SQUIBB COMPANY-13088869

PATIENT
  Age: 92 Year
  Sex: Female
  Weight: 79 kg

DRUGS (4)
  1. GLUCOPHAGE [Suspect]
     Indication: DIABETES MELLITUS
     Route: 048
  2. AVANDIA [Concomitant]
  3. ASPIRIN [Concomitant]
  4. NITRO [Concomitant]
     Route: 060

REACTIONS (2)
  - CHEST PAIN [None]
  - DEATH [None]
